FAERS Safety Report 6616830-1 (Version None)
Quarter: 2010Q1

REPORT INFORMATION
  Report Type: 
  Country: None (occurrence: None)
  Receive Date: 20100301
  Receipt Date: 20100217
  Transmission Date: 20100710
  Serious: Yes (Hospitalization)
  Sender: FDA-Public Use
  Company Number: 512828

PATIENT
  Age: 48 Year
  Sex: Female

DRUGS (3)
  1. PROPOFOL [Suspect]
     Indication: GENERAL ANAESTHESIA
     Dosage: =2650 MG, INTRATHORACIC
     Route: 038
  2. SODIUM CHLORIDE [Suspect]
     Indication: MEDICATION DILUTION
     Dosage: INTRATHORACIC
     Route: 038
  3. LACTATED RINGER'S [Suspect]
     Indication: SPINAL LAMINECTOMY
     Dosage: INTRATHORACIC
     Route: 038

REACTIONS (7)
  - COLLAPSE OF LUNG [None]
  - DRUG ADMINISTERED AT INAPPROPRIATE SITE [None]
  - HAEMODYNAMIC INSTABILITY [None]
  - HYPOTENSION [None]
  - MEDIASTINAL DISORDER [None]
  - MEDICAL DEVICE COMPLICATION [None]
  - TACHYCARDIA [None]
